FAERS Safety Report 7256682-2 (Version None)
Quarter: 2011Q1

REPORT INFORMATION
  Report Type: 
  Country: None (occurrence: None)
  Receive Date: 20110129
  Receipt Date: 20100807
  Transmission Date: 20110831
  Serious: Yes (Hospitalization, Other)
  Sender: FDA-Public Use
  Company Number: US-ABBOTT-10P-163-0663150-00

PATIENT
  Age: 52 Year
  Sex: Male

DRUGS (4)
  1. BENICAR [Concomitant]
     Indication: HYPERTENSION
  2. GLIPIZIDE [Concomitant]
     Indication: TYPE 2 DIABETES MELLITUS
  3. HUMIRA [Suspect]
     Indication: CROHN'S DISEASE
     Dates: start: 20080807, end: 20100709
  4. ASPIRIN [Concomitant]
     Indication: PRODUCT USED FOR UNKNOWN INDICATION

REACTIONS (11)
  - SWELLING [None]
  - FALL [None]
  - PAIN [None]
  - BALANCE DISORDER [None]
  - GAIT DISTURBANCE [None]
  - HYPOAESTHESIA [None]
  - CROHN'S DISEASE [None]
  - GUILLAIN-BARRE SYNDROME [None]
  - MUSCLE SPASMS [None]
  - FATIGUE [None]
  - FEELING ABNORMAL [None]
